FAERS Safety Report 16461284 (Version 2)
Quarter: 2019Q3

REPORT INFORMATION
  Report Type: Spontaneous
  Country: US (occurrence: US)
  Receive Date: 20190621
  Receipt Date: 20190708
  Transmission Date: 20191004
  Serious: Yes (Other)
  Sender: FDA-Public Use
  Company Number: US-ROCHE-2336489

PATIENT
  Age: 59 Year
  Sex: Female

DRUGS (1)
  1. OCREVUS [Suspect]
     Active Substance: OCRELIZUMAB
     Indication: RELAPSING MULTIPLE SCLEROSIS
     Dosage: MOST RECENT DOSE RECEIVED ON /FEB/2019
     Route: 042

REACTIONS (2)
  - Cellulitis [Recovered/Resolved with Sequelae]
  - Vulval abscess [Recovered/Resolved with Sequelae]

NARRATIVE: CASE EVENT DATE: 201903
